FAERS Safety Report 20570304 (Version 6)
Quarter: 2024Q4

REPORT INFORMATION
  Report Type: Spontaneous
  Country: US (occurrence: US)
  Receive Date: 20220309
  Receipt Date: 20241213
  Transmission Date: 20250114
  Serious: Yes (Hospitalization, Disabling, Other)
  Sender: ORGANON
  Company Number: US-ORGANON-O2203USA000620

PATIENT
  Sex: Male

DRUGS (4)
  1. SINGULAIR [Suspect]
     Active Substance: MONTELUKAST SODIUM
     Indication: Asthma
     Dosage: UNK
     Route: 048
     Dates: start: 2009, end: 2010
  2. SINGULAIR [Suspect]
     Active Substance: MONTELUKAST SODIUM
     Dosage: 5 MG
     Route: 048
     Dates: start: 2009, end: 2016
  3. ESTRADIOL [Concomitant]
     Active Substance: ESTRADIOL
     Indication: Hormone replacement therapy
     Dosage: 4 MILLIGRAM, QD (2 MG AT BEDTIME)
  4. SPIRONOLACTONE [Concomitant]
     Active Substance: SPIRONOLACTONE
     Indication: Hormone replacement therapy
     Dosage: 50 MILLIGRAM

REACTIONS (10)
  - Suicide attempt [Not Recovered/Not Resolved]
  - Depression [Recovering/Resolving]
  - Suicide attempt [Not Recovered/Not Resolved]
  - Thinking abnormal [Unknown]
  - Neuropsychological symptoms [Not Recovered/Not Resolved]
  - Anxiety [Recovering/Resolving]
  - Suicidal ideation [Recovered/Resolved]
  - Intentional self-injury [Unknown]
  - Feeling guilty [Unknown]
  - Hot flush [Recovered/Resolved]

NARRATIVE: CASE EVENT DATE: 20110101
